FAERS Safety Report 4322240-2 (Version None)
Quarter: 2004Q1

REPORT INFORMATION
  Report Type: 
  Country: None (occurrence: None)
  Receive Date: 20040323
  Receipt Date: 20040315
  Transmission Date: 20041129
  Serious: Yes (Hospitalization)
  Sender: FDA-Public Use
  Company Number: WAES 0403CHE00025

PATIENT
  Age: 70 Year
  Sex: Female

DRUGS (5)
  1. [THERAPY UNSPECIFIED] [Concomitant]
  2. ZETIA [Suspect]
     Indication: HYPERCHOLESTEROLAEMIA
     Route: 048
     Dates: start: 20031128, end: 20040101
  3. ZETIA [Suspect]
     Indication: HYPERTRIGLYCERIDAEMIA
     Route: 048
     Dates: start: 20031128, end: 20040101
  4. PRAVASTATIN SODIUM [Concomitant]
     Indication: HYPERCHOLESTEROLAEMIA
     Route: 048
  5. PRAVASTATIN SODIUM [Concomitant]
     Indication: HYPERTRIGLYCERIDAEMIA
     Route: 048

REACTIONS (2)
  - ABDOMINAL PAIN [None]
  - ARTHROPATHY [None]
